FAERS Safety Report 17463994 (Version 1)
Quarter: 2020Q1

REPORT INFORMATION
  Report Type: Spontaneous
  Country: DE (occurrence: DE)
  Receive Date: 20200226
  Receipt Date: 20200226
  Transmission Date: 20200409
  Serious: Yes (Other)
  Sender: FDA-Public Use
  Company Number: DE-US-PROVELL PHARMACEUTICALS LLC-9147926

PATIENT
  Sex: Female

DRUGS (7)
  1. EUTHYROX [Suspect]
     Active Substance: LEVOTHYROXINE SODIUM
     Indication: PRODUCT USED FOR UNKNOWN INDICATION
     Dosage: OLD FORMULATION
     Dates: start: 2008, end: 201910
  2. ANDROCUR [Concomitant]
     Active Substance: CYPROTERONE ACETATE
     Indication: ALOPECIA
     Dosage: FORM STRENGTH: 10 (UNITS UNSPECIFIED)
     Dates: start: 2008, end: 2016
  3. DIANE (CYPROTERONE ACETATE\ETHINYL ESTRADIOL) [Concomitant]
     Active Substance: CYPROTERONE ACETATE\ETHINYL ESTRADIOL
     Indication: HIRSUTISM
  4. DIANE (CYPROTERONE ACETATE\ETHINYL ESTRADIOL) [Concomitant]
     Active Substance: CYPROTERONE ACETATE\ETHINYL ESTRADIOL
     Indication: ALOPECIA
     Dosage: FORM STRENGTH: 35 (UNITS UNSPECIFIED)
     Dates: start: 2008, end: 2010
  5. ANDROCUR [Concomitant]
     Active Substance: CYPROTERONE ACETATE
     Indication: HIRSUTISM
  6. LEVONORGESTREL AND ETHINYL ESTRADIOL [Concomitant]
     Active Substance: ETHINYL ESTRADIOL\LEVONORGESTREL
     Indication: ALOPECIA
     Dates: start: 2010, end: 2016
  7. LEVONORGESTREL AND ETHINYL ESTRADIOL [Concomitant]
     Active Substance: ETHINYL ESTRADIOL\LEVONORGESTREL
     Indication: HIRSUTISM

REACTIONS (9)
  - Tinnitus [Not Recovered/Not Resolved]
  - Post procedural complication [Not Recovered/Not Resolved]
  - Weight increased [Unknown]
  - Hair texture abnormal [Unknown]
  - Meningioma [Unknown]
  - Exophthalmos [Unknown]
  - Weight decreased [Not Recovered/Not Resolved]
  - Vth nerve injury [Unknown]
  - Tooth abscess [Unknown]

NARRATIVE: CASE EVENT DATE: 2008
